FAERS Safety Report 5018114-4 (Version None)
Quarter: 2006Q2

REPORT INFORMATION
  Report Type: 
  Country: None (occurrence: None)
  Receive Date: 20060530
  Receipt Date: 20060519
  Transmission Date: 20061013
  Serious: Yes (Hospitalization, Other)
  Sender: FDA-Public Use
  Company Number: 2006050292

PATIENT
  Age: 43 Year
  Sex: Female
  Weight: 89.3586 kg

DRUGS (2)
  1. NORVASC [Suspect]
     Indication: HYPERTENSION
     Dosage: 10 MG (10 MG, QD)
  2. IBUPROFEN [Concomitant]

REACTIONS (1)
  - HYSTERECTOMY [None]
